FAERS Safety Report 9908116 (Version 1)
Quarter: 2014Q1

REPORT INFORMATION
  Report Type: Spontaneous
  Country: US (occurrence: None)
  Receive Date: 20140214
  Receipt Date: 20140214
  Transmission Date: 20141002
  Serious: Yes (Other)
  Sender: FDA-Public Use
  Company Number: None

PATIENT
  Sex: Male

DRUGS (1)
  1. CHERATUSSIN AC [Suspect]

REACTIONS (2)
  - Drug dispensing error [None]
  - Intercepted drug dispensing error [None]
